FAERS Safety Report 8992162 (Version 1)
Quarter: 2012Q4

REPORT INFORMATION
  Report Type: Report from Study
  Country: CA (occurrence: CA)
  Receive Date: 20121231
  Receipt Date: 20121231
  Transmission Date: 20130627
  Serious: Yes (Hospitalization, Other)
  Sender: FDA-Public Use
  Company Number: CA-ROCHE-1173186

PATIENT
  Age: 84 Year
  Sex: Male
  Weight: 60.06 kg

DRUGS (3)
  1. OMALIZUMAB [Suspect]
     Indication: ASTHMA
     Dosage: 300 mg, Q2W
     Route: 058
     Dates: start: 20060202
  2. OMALIZUMAB [Suspect]
     Dosage: 300 mg, Q2W
     Route: 058
     Dates: start: 20101110
  3. OMALIZUMAB [Suspect]
     Route: 058
     Dates: start: 20060222

REACTIONS (16)
  - Asthma [Unknown]
  - Pneumonia [Unknown]
  - Cough [Unknown]
  - Oxygen saturation decreased [Unknown]
  - Rib fracture [Unknown]
  - Urinary tract infection [Unknown]
  - Eating disorder [Unknown]
  - Chest pain [Unknown]
  - Lung infection [Unknown]
  - Lower respiratory tract infection [Unknown]
  - Hypertension [Unknown]
  - Stress [Unknown]
  - Influenza [Unknown]
  - Weight increased [Unknown]
  - Hypersensitivity [Unknown]
  - Drug ineffective [Unknown]
